FAERS Safety Report 9997710 (Version 3)
Quarter: 2014Q3

REPORT INFORMATION
  Report Type: Spontaneous
  Country: US (occurrence: None)
  Receive Date: 20140225
  Receipt Date: 20140723
  Transmission Date: 20150326
  Serious: Yes (Hospitalization, Other)
  Sender: FDA-Public Use
  Company Number: 2013-US-004591

PATIENT
  Age: 42 Year
  Sex: Female

DRUGS (3)
  1. PRIALT [Suspect]
     Active Substance: ZICONOTIDE ACETATE
     Indication: PAIN
     Dosage: UNK UG, QH, INTHRATHECAL
     Route: 037
     Dates: start: 201307, end: 201311
  2. PRIALT [Suspect]
     Active Substance: ZICONOTIDE ACETATE
     Indication: ARTHRITIS
     Dosage: UNK UG, QH, INTHRATHECAL
     Route: 037
     Dates: start: 201307, end: 201311
  3. PRIALT [Suspect]
     Active Substance: ZICONOTIDE ACETATE
     Indication: ARTHRALGIA
     Dosage: UNK UG, QH, INTHRATHECAL
     Route: 037
     Dates: start: 201307, end: 201311

REACTIONS (15)
  - Hallucination [None]
  - Crying [None]
  - Screaming [None]
  - Hypophagia [None]
  - Mental status changes [None]
  - Drug withdrawal syndrome [None]
  - Amnesia [None]
  - Judgement impaired [None]
  - Poisoning [None]
  - Agitation [None]
  - Confusional state [None]
  - Coma [None]
  - Flashback [None]
  - Fall [None]
  - Substance-induced psychotic disorder [None]

NARRATIVE: CASE EVENT DATE: 20131201
